FAERS Safety Report 10045237 (Version 1)
Quarter: 2014Q1

REPORT INFORMATION
  Report Type: Spontaneous
  Country: FR (occurrence: FR)
  Receive Date: 20140328
  Receipt Date: 20140328
  Transmission Date: 20141002
  Serious: Yes (Life-Threatening, Hospitalization, Other)
  Sender: FDA-Public Use
  Company Number: FR-ASTRAZENECA-2014SE21413

PATIENT
  Age: 31710 Day
  Sex: Male

DRUGS (13)
  1. INEXIUM [Suspect]
     Dosage: LONG LASTING TREATMENTS
     Route: 048
     Dates: end: 20140228
  2. KARDEGIC [Suspect]
     Dosage: LONG LASTING TREATMENTS
     Route: 048
     Dates: end: 20140225
  3. CLOPIDOGREL BASE [Suspect]
     Dosage: LONG LASTING TREATMENTS
     Route: 048
     Dates: end: 20140225
  4. ROCEPHINE [Concomitant]
     Dosage: LONG LASTING TREATMENTS
     Route: 042
     Dates: start: 20140220, end: 20140224
  5. RULID [Concomitant]
     Dosage: LONG LASTING TREATMENTS
     Route: 042
     Dates: start: 20140220, end: 20140224
  6. LAROXYL [Concomitant]
     Dosage: LONG LASTING TREATMENTS
  7. BISOPROLOL [Concomitant]
     Dosage: LONG LASTING TREATMENTS
  8. LASILIX [Concomitant]
     Dosage: LONG LASTING TREATMENTS
  9. PARACETAMOL [Concomitant]
     Dosage: LONG LASTING TREATMENTS
  10. NICORANDIL [Concomitant]
     Dosage: LONG LASTING TREATMENTS
  11. DISCOTRINE PATCH [Concomitant]
     Dosage: LONG LASTING TREATMENTS
  12. CALCIPARINE [Concomitant]
     Dosage: LONG LASTING TREATMENTS
     Dates: start: 20140214, end: 20140221
  13. AUGMENTIN [Concomitant]
     Dates: start: 20140215, end: 20140217

REACTIONS (5)
  - Bone marrow failure [Unknown]
  - Cardiac failure [Unknown]
  - Bronchitis [Unknown]
  - Thrombocytopenia [Recovering/Resolving]
  - Therapy cessation [Unknown]
